FAERS Safety Report 24054629 (Version 11)
Quarter: 2025Q2

REPORT INFORMATION
  Report Type: Report from Study
  Country: CA (occurrence: CA)
  Receive Date: 20240705
  Receipt Date: 20250523
  Transmission Date: 20250717
  Serious: Yes (Hospitalization, Other)
  Sender: TAKEDA
  Company Number: CA-TAKEDA-2024TUS068055

PATIENT
  Age: 63 Year
  Sex: Female
  Weight: 68 kg

DRUGS (32)
  1. GLASSIA [Suspect]
     Active Substance: .ALPHA.1-PROTEINASE INHIBITOR HUMAN
     Indication: Alpha-1 antitrypsin deficiency
     Dosage: UNK UNK, 1/WEEK
     Dates: start: 20240618
  2. GLASSIA [Suspect]
     Active Substance: .ALPHA.1-PROTEINASE INHIBITOR HUMAN
     Dosage: UNK UNK, 1/WEEK
  3. GLASSIA [Suspect]
     Active Substance: .ALPHA.1-PROTEINASE INHIBITOR HUMAN
     Dosage: 4062 MILLIGRAM, 1/WEEK
  4. GLASSIA [Suspect]
     Active Substance: .ALPHA.1-PROTEINASE INHIBITOR HUMAN
     Dosage: 4062 MILLIGRAM, 1/WEEK
  5. GLASSIA [Suspect]
     Active Substance: .ALPHA.1-PROTEINASE INHIBITOR HUMAN
     Dosage: 4062 MILLIGRAM, 1/WEEK
  6. GLASSIA [Suspect]
     Active Substance: .ALPHA.1-PROTEINASE INHIBITOR HUMAN
     Dosage: 4062 MILLIGRAM, 1/WEEK
  7. GLASSIA [Suspect]
     Active Substance: .ALPHA.1-PROTEINASE INHIBITOR HUMAN
     Dosage: 4038 MILLIGRAM, 1/WEEK
  8. GLASSIA [Suspect]
     Active Substance: .ALPHA.1-PROTEINASE INHIBITOR HUMAN
  9. GLASSIA [Suspect]
     Active Substance: .ALPHA.1-PROTEINASE INHIBITOR HUMAN
     Dosage: 4038 MILLIGRAM, 1/WEEK
  10. GLASSIA [Suspect]
     Active Substance: .ALPHA.1-PROTEINASE INHIBITOR HUMAN
  11. GLASSIA [Suspect]
     Active Substance: .ALPHA.1-PROTEINASE INHIBITOR HUMAN
     Dosage: 500 MILLIGRAM, 1/WEEK
  12. GLASSIA [Suspect]
     Active Substance: .ALPHA.1-PROTEINASE INHIBITOR HUMAN
     Dosage: 500 MILLIGRAM, 1/WEEK
  13. SOLU-MEDROL [Suspect]
     Active Substance: METHYLPREDNISOLONE SODIUM SUCCINATE
     Indication: Product used for unknown indication
  14. PROLASTIN [Concomitant]
     Active Substance: .ALPHA.1-PROTEINASE INHIBITOR HUMAN
     Indication: Alpha-1 antitrypsin deficiency
  15. APIXABAN [Concomitant]
     Active Substance: APIXABAN
     Indication: Pulmonary thrombosis
  16. TRAZODONE [Concomitant]
     Active Substance: TRAZODONE HYDROCHLORIDE
  17. DAYVIGO [Concomitant]
     Active Substance: LEMBOREXANT
     Indication: Sleep disorder
  18. ALBUTEROL [Concomitant]
     Active Substance: ALBUTEROL
  19. INDAPAMIDE [Concomitant]
     Active Substance: INDAPAMIDE
  20. INDAPAMIDE [Concomitant]
     Active Substance: INDAPAMIDE
  21. GABAPENTIN [Concomitant]
     Active Substance: GABAPENTIN
  22. GABAPENTIN [Concomitant]
     Active Substance: GABAPENTIN
  23. LEMBOREXANT [Concomitant]
     Active Substance: LEMBOREXANT
  24. FLUTICASONE [Concomitant]
     Active Substance: FLUTICASONE
  25. FLUTICASONE [Concomitant]
     Active Substance: FLUTICASONE
  26. TRELEGY ELLIPTA [Concomitant]
     Active Substance: FLUTICASONE FUROATE\UMECLIDINIUM BROMIDE\VILANTEROL TRIFENATATE
  27. TRELEGY ELLIPTA [Concomitant]
     Active Substance: FLUTICASONE FUROATE\UMECLIDINIUM BROMIDE\VILANTEROL TRIFENATATE
  28. BREZTRI [Concomitant]
     Active Substance: BUDESONIDE\FORMOTEROL\GLYCOPYRROLATE
  29. BREO ELLIPTA [Concomitant]
     Active Substance: FLUTICASONE FUROATE\VILANTEROL TRIFENATATE
     Dosage: UNK UNK, BID
  30. TAMSULOSIN [Concomitant]
     Active Substance: TAMSULOSIN
  31. MYRBETRIQ [Concomitant]
     Active Substance: MIRABEGRON
  32. NAPROXEN [Concomitant]
     Active Substance: NAPROXEN

REACTIONS (16)
  - Nephrolithiasis [Recovering/Resolving]
  - Cataract [Recovering/Resolving]
  - Infection [Not Recovered/Not Resolved]
  - Dry throat [Unknown]
  - Dyspepsia [Unknown]
  - Inappropriate schedule of product administration [Unknown]
  - Pain [Unknown]
  - Incorrect dose administered [Recovering/Resolving]
  - Poor venous access [Unknown]
  - Chills [Unknown]
  - Pruritus [Unknown]
  - Somnolence [Unknown]
  - Diarrhoea [Unknown]
  - Cough [Recovering/Resolving]
  - Fatigue [Unknown]
  - Urinary tract infection [Recovering/Resolving]

NARRATIVE: CASE EVENT DATE: 20240626
